FAERS Safety Report 8249210-6 (Version None)
Quarter: 2012Q1

REPORT INFORMATION
  Report Type: 
  Country: None (occurrence: None)
  Receive Date: 20120328
  Receipt Date: 20120317
  Transmission Date: 20120608
  Serious: Yes (Hospitalization)
  Sender: FDA-Public Use
  Company Number: UTC-015915

PATIENT
  Age: 68 Year
  Sex: Male

DRUGS (2)
  1. AMBRISENTAN (AMBRISENTAN) [Concomitant]
  2. TYVASO [Suspect]
     Indication: PULMONARY ARTERIAL HYPERTENSION
     Dosage: 96 MCG (24 MCG, 4 IN 1 D), INHALATION
     Route: 055
     Dates: start: 20111201, end: 20120101

REACTIONS (13)
  - STAPHYLOCOCCAL INFECTION [None]
  - ENCEPHALOPATHY [None]
  - METABOLIC ACIDOSIS [None]
  - AGGRESSION [None]
  - DEPRESSED LEVEL OF CONSCIOUSNESS [None]
  - THALAMIC INFARCTION [None]
  - DEVICE RELATED INFECTION [None]
  - PYREXIA [None]
  - COGNITIVE DISORDER [None]
  - BLOOD CREATININE INCREASED [None]
  - SOMNOLENCE [None]
  - INTERSTITIAL LUNG DISEASE [None]
  - HYPOTENSION [None]
